FAERS Safety Report 5755965-2 (Version None)
Quarter: 2008Q2

REPORT INFORMATION
  Report Type: 
  Country: None (occurrence: None)
  Receive Date: 20080528
  Receipt Date: 20080514
  Transmission Date: 20081010
  Serious: Yes (Disabling)
  Sender: FDA-Public Use
  Company Number: 2008-GWCA-031

PATIENT
  Age: 57 Year
  Sex: Female

DRUGS (6)
  1. TAMBOCOR [Suspect]
     Indication: HEART RATE IRREGULAR
     Dosage: 50MG - BID- ORAL
     Route: 048
     Dates: start: 20080101, end: 20080501
  2. COUMADIN [Concomitant]
  3. BISOPROLOL (MONOCOR) [Concomitant]
  4. HALOBETASOL PROPIONATE CREAM (ULTRAVATE) [Concomitant]
  5. AMITRIPTYLINE HCL [Concomitant]
  6. CALCIUM SUPPLEMENT [Concomitant]

REACTIONS (1)
  - DEAFNESS UNILATERAL [None]
